FAERS Safety Report 20653405 (Version 3)
Quarter: 2022Q2

REPORT INFORMATION
  Report Type: Report from Study
  Country: US (occurrence: US)
  Receive Date: 20220330
  Receipt Date: 20220509
  Transmission Date: 20220721
  Serious: Yes (Hospitalization)
  Sender: FDA-Public Use
  Company Number: US-JNJFOC-20220351776

PATIENT
  Age: 22 Year
  Sex: Female

DRUGS (21)
  1. INFLIXIMAB [Suspect]
     Active Substance: INFLIXIMAB
     Indication: Inflammatory bowel disease
     Route: 042
     Dates: end: 20120217
  2. ALUMINIUM CHLORIDE [Concomitant]
  3. ACETAMINOPHEN [Concomitant]
     Active Substance: ACETAMINOPHEN
  4. AZATHIOPRINE [Concomitant]
     Active Substance: AZATHIOPRINE
  5. DIAZEPAM [Concomitant]
     Active Substance: DIAZEPAM
  6. DICYCLOMINE [Concomitant]
     Active Substance: DICYCLOMINE HYDROCHLORIDE
  7. SACCHAROMYCES CEREVISIAE [Concomitant]
     Active Substance: SACCHAROMYCES CEREVISIAE
  8. GABAPENTIN [Concomitant]
     Active Substance: GABAPENTIN
  9. HYDROMORPHONE [Concomitant]
     Active Substance: HYDROMORPHONE
  10. KETAMINE [Concomitant]
     Active Substance: KETAMINE
  11. ZINC SULFATE [Concomitant]
     Active Substance: ZINC SULFATE
  12. STELARA [Concomitant]
     Active Substance: USTEKINUMAB
  13. SUMATRIPTAN SUCCINATE [Concomitant]
     Active Substance: SUMATRIPTAN SUCCINATE
  14. ERGOCALCIFEROL [Concomitant]
     Active Substance: ERGOCALCIFEROL
  15. LOPERAMIDE [Concomitant]
     Active Substance: LOPERAMIDE
  16. MIRTAZAPINE [Concomitant]
     Active Substance: MIRTAZAPINE
  17. SERTRALINE [Concomitant]
     Active Substance: SERTRALINE HYDROCHLORIDE
  18. SIMETHICONE (DIMETHICONE) [Concomitant]
     Active Substance: DIMETHICONE
  19. OMEPRAZOLE [Concomitant]
     Active Substance: OMEPRAZOLE
  20. ONDANSETRON [Concomitant]
     Active Substance: ONDANSETRON
  21. OXYCODONE [Concomitant]
     Active Substance: OXYCODONE

REACTIONS (1)
  - Pouchitis [Recovered/Resolved]

NARRATIVE: CASE EVENT DATE: 20210414
